FAERS Safety Report 8189320-5 (Version None)
Quarter: 2012Q1

REPORT INFORMATION
  Report Type: 
  Country: None (occurrence: None)
  Receive Date: 20120307
  Receipt Date: 20120223
  Transmission Date: 20120608
  Serious: Yes (Disabling)
  Sender: FDA-Public Use
  Company Number: GB-RANBAXY-2012R1-53227

PATIENT
  Age: 75 Year
  Sex: Female
  Weight: 69.854 kg

DRUGS (32)
  1. AMITRIPTYLINE HCL [Concomitant]
     Dosage: UNK
     Route: 065
     Dates: start: 20111031, end: 20111128
  2. BUPRENORPHINE [Concomitant]
     Indication: PRODUCT USED FOR UNKNOWN INDICATION
     Dosage: UNK
     Route: 065
     Dates: start: 20111207
  3. FUROSEMIDE [Concomitant]
     Indication: PRODUCT USED FOR UNKNOWN INDICATION
     Dosage: UNK
     Route: 065
     Dates: start: 20111130
  4. LANSOPRAZOLE [Concomitant]
     Indication: PRODUCT USED FOR UNKNOWN INDICATION
     Dosage: UNK
     Route: 065
     Dates: start: 20111207
  5. ACETAMINOPHEN [Concomitant]
     Dosage: UNK
     Route: 065
     Dates: start: 20111207, end: 20111221
  6. CLARITHROMYCIN [Suspect]
     Indication: PRODUCT USED FOR UNKNOWN INDICATION
     Dosage: UNK
     Route: 065
     Dates: start: 20120213
  7. AMLODIPINE [Concomitant]
     Dosage: UNK
     Route: 065
     Dates: start: 20111031, end: 20111128
  8. FERROUS SULFATE TAB [Concomitant]
     Dosage: UNK
     Route: 065
     Dates: start: 20111031, end: 20111128
  9. HYOSCINE BUTYLBROMIDE [Concomitant]
     Dosage: UNK
     Route: 065
     Dates: start: 20111031, end: 20111114
  10. HYOSCINE BUTYLBROMIDE [Concomitant]
     Dosage: UNK
     Route: 065
     Dates: start: 20120104, end: 20120118
  11. ACETAMINOPHEN [Concomitant]
     Dosage: UNK
     Route: 065
     Dates: start: 20111031, end: 20111114
  12. AMLODIPINE [Concomitant]
     Indication: PRODUCT USED FOR UNKNOWN INDICATION
     Dosage: UNK
     Route: 065
     Dates: start: 20111207, end: 20120104
  13. ATORVASTATIN [Concomitant]
     Indication: PRODUCT USED FOR UNKNOWN INDICATION
     Dosage: UNK
     Route: 065
     Dates: start: 20111207
  14. METFORMIN HCL [Concomitant]
     Dosage: UNK
     Route: 065
     Dates: start: 20120111, end: 20120208
  15. MOVELAT [Concomitant]
     Indication: PRODUCT USED FOR UNKNOWN INDICATION
     Dosage: UNK
     Route: 065
     Dates: start: 20111207
  16. ACETAMINOPHEN [Concomitant]
     Dosage: UNK
     Route: 065
     Dates: start: 20120104, end: 20120118
  17. QUININE SULFATE [Concomitant]
     Indication: PRODUCT USED FOR UNKNOWN INDICATION
     Dosage: UNK
     Route: 065
     Dates: start: 20111223
  18. AMITRIPTYLINE HCL [Concomitant]
     Indication: PRODUCT USED FOR UNKNOWN INDICATION
     Dosage: UNK
     Route: 065
     Dates: start: 20111207
  19. BUPRENORPHINE [Concomitant]
     Dosage: UNK
     Route: 065
     Dates: start: 20111031, end: 20111128
  20. GLIMEPIRIDE [Concomitant]
     Indication: PRODUCT USED FOR UNKNOWN INDICATION
     Dosage: UNK
     Route: 065
     Dates: start: 20111223, end: 20120122
  21. METFORMIN HCL [Concomitant]
     Indication: PRODUCT USED FOR UNKNOWN INDICATION
     Dosage: UNK
     Route: 065
     Dates: start: 20111207, end: 20120104
  22. HYOSCINE BUTYLBROMIDE [Concomitant]
     Indication: PRODUCT USED FOR UNKNOWN INDICATION
     Dosage: UNK
     Route: 065
     Dates: start: 20120201
  23. MOVELAT [Concomitant]
     Dosage: UNK
     Route: 065
     Dates: start: 20111031, end: 20111128
  24. RAMIPRIL [Concomitant]
     Indication: PRODUCT USED FOR UNKNOWN INDICATION
     Dosage: UNK
     Route: 065
     Dates: start: 20111223
  25. FERROUS SULFATE TAB [Concomitant]
     Indication: PRODUCT USED FOR UNKNOWN INDICATION
     Dosage: UNK
     Route: 065
     Dates: start: 20111207
  26. HYOSCINE BUTYLBROMIDE [Concomitant]
     Dosage: UNK
     Route: 065
     Dates: start: 20111207, end: 20111221
  27. METFORMIN HCL [Concomitant]
     Dosage: UNK
     Route: 065
     Dates: start: 20111031, end: 20111128
  28. ACETAMINOPHEN [Concomitant]
     Indication: PRODUCT USED FOR UNKNOWN INDICATION
     Dosage: UNK
     Route: 065
     Dates: start: 20120201
  29. ATORVASTATIN [Concomitant]
     Dosage: UNK
     Route: 065
     Dates: start: 20111031, end: 20111128
  30. LANSOPRAZOLE [Concomitant]
     Dosage: UNK
     Route: 065
     Dates: start: 20111031, end: 20111128
  31. QUININE SULFATE [Concomitant]
     Dosage: UNK
     Route: 065
     Dates: start: 20111031, end: 20111130
  32. SPIRONOLACTONE [Concomitant]
     Indication: PRODUCT USED FOR UNKNOWN INDICATION
     Dosage: UNK
     Route: 065
     Dates: start: 20111130

REACTIONS (2)
  - MALAISE [None]
  - HEADACHE [None]
